FAERS Safety Report 25681414 (Version 3)
Quarter: 2025Q3

REPORT INFORMATION
  Report Type: Report from Study
  Country: US (occurrence: US)
  Receive Date: 20250814
  Receipt Date: 20250826
  Transmission Date: 20251020
  Serious: Yes (Hospitalization)
  Sender: SANOFI AVENTIS
  Company Number: US-SA-2025SA235880

PATIENT
  Age: 55 Year
  Sex: Male

DRUGS (2)
  1. QFITLIA [Suspect]
     Active Substance: FITUSIRAN
     Indication: Factor VIII deficiency
     Route: 058
     Dates: start: 20250718
  2. QFITLIA [Suspect]
     Active Substance: FITUSIRAN
     Indication: Factor IX deficiency

REACTIONS (9)
  - Chest pain [Unknown]
  - Fall [Unknown]
  - Abdominal distension [Recovering/Resolving]
  - Haemorrhage [Recovered/Resolved]
  - Limb injury [Recovered/Resolved]
  - Abdominal pain lower [Not Recovered/Not Resolved]
  - Limb injury [Recovered/Resolved]
  - Contusion [Recovered/Resolved]
  - Peripheral swelling [Recovered/Resolved]

NARRATIVE: CASE EVENT DATE: 20250101
